FAERS Safety Report 8256799-X (Version None)
Quarter: 2012Q2

REPORT INFORMATION
  Report Type: 
  Country: None (occurrence: None)
  Receive Date: 20120403
  Receipt Date: 20120322
  Transmission Date: 20120825
  Serious: Yes (Hospitalization, Other)
  Sender: FDA-Public Use
  Company Number: PHBS2010DE00522

PATIENT
  Sex: Male
  Weight: 132 kg

DRUGS (10)
  1. CALCIUM CHANNEL BLOCKERS [Concomitant]
     Dates: end: 20110708
  2. RASILEZ HCT [Suspect]
     Indication: HYPERTENSION
     Dosage: 1 DF, QD
     Route: 048
  3. SIMVASTATIN [Concomitant]
     Indication: HYPERCHOLESTEROLAEMIA
     Dosage: 20 MG, QD
     Dates: start: 20020201
  4. LEVOTHYROXINE SODIUM [Concomitant]
     Indication: HYPOTHYROIDISM
     Dosage: 50 MG, QD
     Dates: start: 20080101
  5. DIGITOXIN TAB [Concomitant]
     Indication: CARDIAC FAILURE
     Dosage: 0.07 MG, QD
     Dates: start: 20100101
  6. ACE INHIBITOR NOS [Concomitant]
     Dates: end: 20120111
  7. RASILEZ [Suspect]
     Dosage: 300 MG, QD
     Route: 048
  8. RASILEZ [Suspect]
     Indication: HYPERTENSION
     Route: 048
     Dates: start: 20090102, end: 20100330
  9. BISOPROLOL FUMARATE [Concomitant]
     Indication: ARRHYTHMIA
     Dosage: 5 MG, QD
     Dates: start: 20060101
  10. PROTAPHAN [Concomitant]
     Indication: DIABETES MELLITUS
     Dosage: 60 IU, QD
     Dates: start: 20100101

REACTIONS (12)
  - C-REACTIVE PROTEIN INCREASED [None]
  - RENAL FAILURE [None]
  - BLOOD GLUCOSE DECREASED [None]
  - BLOOD CREATININE INCREASED [None]
  - DYSPNOEA [None]
  - HAEMOGLOBIN DECREASED [None]
  - ATRIAL FIBRILLATION [None]
  - ANGINA PECTORIS [None]
  - BLOOD PRESSURE INCREASED [None]
  - PAIN [None]
  - TACHYARRHYTHMIA [None]
  - GOUT [None]
